FAERS Safety Report 11512377 (Version 1)
Quarter: 2015Q3

REPORT INFORMATION
  Report Type: Spontaneous
  Country: US (occurrence: None)
  Receive Date: 20150914
  Receipt Date: 20150914
  Transmission Date: 20151125
  Serious: Yes (Death)
  Sender: FDA-Public Use
  Company Number: CPI 7059

PATIENT
  Age: 52 Year
  Sex: Male

DRUGS (5)
  1. LEVETIRACETAM. [Concomitant]
     Active Substance: LEVETIRACETAM
  2. LACTULOSE 30 ML + UNKNOWN MFR [Suspect]
     Active Substance: LACTULOSE
     Indication: CONSTIPATION
     Dosage: NG TUBE
  3. RIFAMIXIN [Concomitant]
     Active Substance: RIFAXIMIN
  4. EMPIRICAL ANTIBIOTICS [Concomitant]
  5. LORAZEPAM. [Concomitant]
     Active Substance: LORAZEPAM

REACTIONS (4)
  - Multi-organ disorder [None]
  - Stupor [None]
  - Coma [None]
  - Hepatorenal syndrome [None]

NARRATIVE: CASE EVENT DATE: 2014
